FAERS Safety Report 15233784 (Version 16)
Quarter: 2022Q1

REPORT INFORMATION
  Report Type: Spontaneous
  Country: BR (occurrence: BR)
  Receive Date: 20180802
  Receipt Date: 20220325
  Transmission Date: 20220423
  Serious: Yes (Hospitalization, Other)
  Sender: FDA-Public Use
  Company Number: BR-GLAXOSMITHKLINE-BR2017GSK169298

PATIENT
  Age: 35 Year
  Sex: Female
  Weight: 79 kg

DRUGS (7)
  1. BENLYSTA [Suspect]
     Active Substance: BELIMUMAB
     Indication: Systemic lupus erythematosus
     Dosage: 800 MG, UNK
     Dates: start: 20171026
  2. BENLYSTA [Suspect]
     Active Substance: BELIMUMAB
     Dosage: 700 MG, UNK
     Dates: start: 20180425
  3. BENLYSTA [Suspect]
     Active Substance: BELIMUMAB
     Dosage: UNK
     Dates: start: 20160301
  4. SERTRALINE [Concomitant]
     Active Substance: SERTRALINE HYDROCHLORIDE
     Indication: Product used for unknown indication
     Dosage: UNK
  5. WARFARIN SODIUM [Concomitant]
     Active Substance: WARFARIN SODIUM
     Indication: Product used for unknown indication
     Dosage: UNK
  6. PREDNISONE [Concomitant]
     Active Substance: PREDNISONE
     Indication: Product used for unknown indication
     Dosage: UNK
  7. HYDROXYCHLOROQUINE [Concomitant]
     Active Substance: HYDROXYCHLOROQUINE
     Indication: Product used for unknown indication
     Dosage: UNK

REACTIONS (25)
  - Fall [Unknown]
  - Pericardial effusion [Recovering/Resolving]
  - Pneumonia [Unknown]
  - Pulmonary embolism [Unknown]
  - Stress [Unknown]
  - Thrombosis [Unknown]
  - Fatigue [Recovering/Resolving]
  - Joint injury [Unknown]
  - Ligament injury [Unknown]
  - Myalgia [Unknown]
  - Gait disturbance [Unknown]
  - Knee operation [Unknown]
  - Depression [Unknown]
  - Arthropathy [Unknown]
  - Rhinitis [Recovered/Resolved]
  - Heart rate increased [Recovered/Resolved]
  - Headache [Recovered/Resolved]
  - Laboratory test abnormal [Unknown]
  - Drug ineffective [Unknown]
  - Overdose [Not Recovered/Not Resolved]
  - Underdose [Unknown]
  - Product dose omission issue [Recovered/Resolved]
  - Inappropriate schedule of product administration [Unknown]
  - Social problem [Unknown]
  - Product availability issue [Unknown]

NARRATIVE: CASE EVENT DATE: 20180709
